FAERS Safety Report 7096794-X (Version None)
Quarter: 2010Q4

REPORT INFORMATION
  Report Type: 
  Country: None (occurrence: None)
  Receive Date: 20101111
  Receipt Date: 20101101
  Transmission Date: 20110411
  Serious: Yes (Other)
  Sender: FDA-Public Use
  Company Number: US-MYLANLABS-2010S1020120

PATIENT
  Age: 50 Year
  Sex: Female

DRUGS (8)
  1. VERAPAMIL [Suspect]
     Indication: HEADACHE
     Route: 048
     Dates: start: 20101028, end: 20101028
  2. BENICAR HCT [Concomitant]
     Indication: BLOOD PRESSURE INCREASED
     Dosage: 20MG/12.5MG
     Route: 048
  3. URSODIOL [Concomitant]
     Indication: CHOLELITHIASIS
     Route: 048
  4. PRAVASTATIN [Concomitant]
     Indication: BLOOD CHOLESTEROL INCREASED
     Route: 048
  5. REGLAN [Concomitant]
     Indication: GASTROINTESTINAL DISORDER
     Route: 048
  6. PROTONIX [Concomitant]
     Indication: GASTROINTESTINAL DISORDER
     Route: 048
  7. PRISTIQ [Concomitant]
     Indication: ANXIETY
     Route: 048
  8. PERCOCET [Concomitant]
     Indication: HEADACHE
     Dosage: 10MG/325MG
     Route: 048
     Dates: start: 20100801

REACTIONS (9)
  - BLOOD PRESSURE INCREASED [None]
  - DRUG INEFFECTIVE [None]
  - DYSPNOEA [None]
  - HEADACHE [None]
  - NAUSEA [None]
  - PALPITATIONS [None]
  - REACTION TO DRUG EXCIPIENTS [None]
  - SWELLING FACE [None]
  - VOMITING [None]
